FAERS Safety Report 5258523-1 (Version None)
Quarter: 2007Q1

REPORT INFORMATION
  Report Type: 
  Country: None (occurrence: None)
  Receive Date: 20070302
  Receipt Date: 20070223
  Transmission Date: 20070707
  Serious: Yes (Other)
  Sender: FDA-Public Use
  Company Number: THYM-11335

PATIENT
  Age: 54 Year
  Sex: Female
  Weight: 77.1 kg

DRUGS (1)
  1. THYMOGLOBULIN [Suspect]
     Indication: LIVER TRANSPLANT
     Dosage: 4.5 MG/KG IV
     Route: 042
     Dates: start: 20051219, end: 20051225

REACTIONS (1)
  - LIVER TRANSPLANT REJECTION [None]
